FAERS Safety Report 10191110 (Version 1)
Quarter: 2014Q2

REPORT INFORMATION
  Report Type: Report from Study
  Country: US (occurrence: US)
  Receive Date: 20140523
  Receipt Date: 20140523
  Transmission Date: 20141212
  Serious: Yes (Other)
  Sender: FDA-Public Use
  Company Number: PHEH2014US010487

PATIENT
  Age: 58 Year
  Sex: Male

DRUGS (18)
  1. GILENYA [Suspect]
     Indication: MULTIPLE SCLEROSIS
     Dosage: 0.5 MG, QD
     Route: 048
     Dates: start: 2012, end: 201405
  2. LYRICA [Concomitant]
     Dosage: 225 MG, UNK
  3. LYRICA [Concomitant]
     Dosage: 150 MG, UNK
  4. ACYCLOVIR [Concomitant]
     Dosage: 400 MG, UNK
  5. WARFARIN [Concomitant]
     Dosage: 10 MG, UNK
  6. WARFARIN [Concomitant]
     Dosage: 5 MG, UNK
  7. ATORVASTATIN [Concomitant]
  8. CARBAMAZEPINE [Concomitant]
     Dosage: 300 MG, UNK
  9. SERTRALINE [Concomitant]
     Dosage: 100 MG, UNK
  10. BENAZEPRIL W/HYDROCHLOROTHIAZIDE [Concomitant]
  11. OMEPRAZOLE [Concomitant]
     Dosage: 20 MG, UNK
  12. SAW PALMETTO [Concomitant]
  13. CALCIUM D3 VIT [Concomitant]
  14. MULTIVITAMIN                       /00097801/ [Concomitant]
  15. HYDROXYZINE [Concomitant]
     Dosage: 50 MG, UNK
  16. DIAZEPAM [Concomitant]
  17. PARACETAMOL [Concomitant]
     Dosage: 8.6 MG, UNK
  18. FENOFIBRATE [Concomitant]
     Dosage: 200 MG, UNK

REACTIONS (3)
  - Optic neuritis [Unknown]
  - Cystoid macular oedema [Unknown]
  - Visual impairment [Unknown]
